FAERS Safety Report 4499259-4 (Version None)
Quarter: 2004Q4

REPORT INFORMATION
  Report Type: 
  Country: None (occurrence: None)
  Receive Date: 20041111
  Receipt Date: 20041102
  Transmission Date: 20050328
  Serious: Yes (Death)
  Sender: FDA-Public Use
  Company Number: US-JNJFOC-20040908819

PATIENT
  Age: 38 Year
  Sex: Male

DRUGS (7)
  1. ULTRAM [Suspect]
     Indication: DRUG USE FOR UNKNOWN INDICATION
     Route: 049
  2. FENTANYL [Suspect]
     Indication: DRUG USE FOR UNKNOWN INDICATION
  3. CLONAZEPAM [Suspect]
     Indication: DRUG USE FOR UNKNOWN INDICATION
     Route: 049
  4. CARISOPRODOL [Suspect]
     Indication: DRUG USE FOR UNKNOWN INDICATION
     Route: 049
  5. ETHANOL [Suspect]
     Indication: DRUG USE FOR UNKNOWN INDICATION
  6. COCAINE [Suspect]
     Indication: DRUG USE FOR UNKNOWN INDICATION
  7. OLANZAPINE [Suspect]
     Indication: DRUG USE FOR UNKNOWN INDICATION

REACTIONS (4)
  - CARDIO-RESPIRATORY ARREST [None]
  - DIABETES MELLITUS INSULIN-DEPENDENT [None]
  - DRUG TOXICITY [None]
  - MULTIPLE DRUG OVERDOSE [None]
